FAERS Safety Report 18262191 (Version 1)
Quarter: 2020Q3

REPORT INFORMATION
  Report Type: Spontaneous
  Country: US (occurrence: US)
  Receive Date: 20200506
  Receipt Date: 20200506
  Transmission Date: 20201103
  Serious: No
  Sender: FDA-Public Use
  Company Number: None

PATIENT
  Age: 6 Decade
  Sex: Female

DRUGS (2)
  1. LOPINAVIR [Suspect]
     Active Substance: LOPINAVIR
     Indication: COVID-19
     Route: 048
     Dates: start: 2020
  2. INTERFERON ALFA?2B [Suspect]
     Active Substance: INTERFERON ALFA-2B
     Indication: COVID-19
     Dosage: ?          OTHER DOSE:5000000 U;?
     Route: 055
     Dates: start: 2020

REACTIONS (5)
  - Blood potassium decreased [None]
  - General physical health deterioration [None]
  - Product use issue [None]
  - Blood albumin decreased [None]
  - Lymphocyte count decreased [None]
